FAERS Safety Report 16487816 (Version 2)
Quarter: 2019Q3

REPORT INFORMATION
  Report Type: Report from Study
  Country: US (occurrence: US)
  Receive Date: 20190627
  Receipt Date: 20190723
  Transmission Date: 20191004
  Serious: Yes (Hospitalization)
  Sender: FDA-Public Use
  Company Number: US-SEATTLE GENETICS-2019SGN02180

PATIENT
  Age: 4 Year
  Sex: Male
  Weight: 17.8 kg

DRUGS (6)
  1. BRENTUXIMAB VEDOTIN [Suspect]
     Active Substance: BRENTUXIMAB VEDOTIN
     Indication: HODGKIN^S DISEASE
     Dosage: 1.8 MG/KG, OVER 30 MINU ON DAY 1
     Route: 042
     Dates: start: 20190530, end: 20190530
  2. PREDNISONE. [Suspect]
     Active Substance: PREDNISONE
     Indication: HODGKIN^S DISEASE
     Dosage: 20 MG/M2, BID ON DAYS 1-7
     Route: 048
     Dates: start: 20190530, end: 20190605
  3. VINCRISTINE [Suspect]
     Active Substance: VINCRISTINE
     Indication: HODGKIN^S DISEASE
     Dosage: 1.4 MG/M2, IV PUSH OVER 1 MIN OR INFUSION ON DAY 8
     Route: 042
     Dates: start: 20190606, end: 20190606
  4. ETOPOSIDE. [Suspect]
     Active Substance: ETOPOSIDE
     Indication: HODGKIN^S DISEASE
     Dosage: 125 MG/M2, OVER 60-120 MIN ON DAYS 1-3
     Route: 042
     Dates: start: 20190530, end: 20190601
  5. CYCLOPHOSPHAMIDE. [Suspect]
     Active Substance: CYCLOPHOSPHAMIDE
     Indication: HODGKIN^S DISEASE
     Dosage: 600 MG/M2, OVER 30-60 MIN ON DAYS 1-2
     Route: 042
     Dates: start: 20190530, end: 20190531
  6. DOXORUBICIN [Suspect]
     Active Substance: DOXORUBICIN
     Indication: HODGKIN^S DISEASE
     Dosage: 25 MG/M2, BOLUS OVER 1-5 MIN OR BY INTERMITTENT INFUSION OVER 1-15 MIN ON DAYS 1 AND 2
     Route: 042
     Dates: start: 20190530, end: 20190531

REACTIONS (7)
  - Multiple organ dysfunction syndrome [Unknown]
  - Upper respiratory tract infection [Unknown]
  - Hyperglycaemia [Unknown]
  - Respiratory failure [Unknown]
  - Enterocolitis infectious [Unknown]
  - Hypokalaemia [Unknown]
  - Sepsis [Unknown]

NARRATIVE: CASE EVENT DATE: 20190606
